FAERS Safety Report 6874934-2 (Version None)
Quarter: 2010Q2

REPORT INFORMATION
  Report Type: 
  Country: None (occurrence: None)
  Receive Date: 20100616
  Receipt Date: 20100310
  Transmission Date: 20101027
  Serious: Yes (Disabling)
  Sender: FDA-Public Use
  Company Number: SP02812

PATIENT
  Age: 39 Year
  Sex: Female
  Weight: 55.3388 kg

DRUGS (1)
  1. METOZOLV ODT [Suspect]
     Indication: DIARRHOEA
     Dosage: 10 MG (10 MG,SEE TEXT),ORAL
     Route: 048
     Dates: start: 20100120, end: 20100213

REACTIONS (2)
  - DIZZINESS [None]
  - VISION BLURRED [None]
